FAERS Safety Report 17334100 (Version 1)
Quarter: 2020Q1

REPORT INFORMATION
  Report Type: Spontaneous
  Country: PT (occurrence: PT)
  Receive Date: 20200128
  Receipt Date: 20200128
  Transmission Date: 20200409
  Serious: Yes (Other)
  Sender: FDA-Public Use
  Company Number: PT-TEVA-2020-PT-1174652

PATIENT
  Age: 43 Year
  Sex: Male

DRUGS (5)
  1. OLANZAPINE. [Suspect]
     Active Substance: OLANZAPINE
     Indication: SCHIZOPHRENIA
     Dosage: 20 MG AT BEDTIME
     Route: 048
     Dates: start: 20191124, end: 20191202
  2. ZYPREXA [Suspect]
     Active Substance: OLANZAPINE
     Indication: SCHIZOPHRENIA
     Dosage: 20 MG AT BEDTIME
     Route: 048
     Dates: start: 20191124, end: 20191202
  3. LORAZEPAM. [Concomitant]
     Active Substance: LORAZEPAM
     Dosage: 7,5MG/DIA
  4. ZUCLOPENTHIXOL [Concomitant]
     Active Substance: ZUCLOPENTHIXOL
     Dosage: 200MG FORTNIGHTLY
  5. RISPERIDONE. [Concomitant]
     Active Substance: RISPERIDONE
     Dosage: 8MG/DIA

REACTIONS (1)
  - Hepatotoxicity [Recovered/Resolved]

NARRATIVE: CASE EVENT DATE: 20191124
